FAERS Safety Report 8061663-5 (Version None)
Quarter: 2012Q1

REPORT INFORMATION
  Report Type: 
  Country: None (occurrence: None)
  Receive Date: 20120123
  Receipt Date: 20120113
  Transmission Date: 20120608
  Serious: Yes (Hospitalization)
  Sender: FDA-Public Use
  Company Number: US-BIOGENIDEC-2011BI026666

PATIENT
  Age: 65 Year
  Sex: Female

DRUGS (6)
  1. TYSABRI [Suspect]
     Indication: MULTIPLE SCLEROSIS
     Route: 042
     Dates: start: 20110331
  2. PROPRANOLOL [Concomitant]
     Indication: MIGRAINE
  3. LASIX [Concomitant]
  4. MEDICATION (NOS) [Concomitant]
     Indication: GASTROOESOPHAGEAL REFLUX DISEASE
  5. DIOVAN [Concomitant]
     Indication: HYPERTENSION
  6. IRON [Concomitant]
     Indication: ANAEMIA

REACTIONS (4)
  - DIARRHOEA [None]
  - RENAL FAILURE ACUTE [None]
  - ABDOMINAL PAIN [None]
  - ANAEMIA [None]
